FAERS Safety Report 12453822 (Version 1)
Quarter: 2016Q2

REPORT INFORMATION
  Report Type: Other
  Country: FR (occurrence: FR)
  Receive Date: 20160609
  Receipt Date: 20160609
  Transmission Date: 20160815
  Serious: Yes (Hospitalization)
  Sender: FDA-Public Use
  Company Number: FR-TAKEDA-2016TUS009622

PATIENT
  Age: 20 Year
  Sex: Female

DRUGS (6)
  1. HELICIDINE [Concomitant]
     Active Substance: ESCARGOT
  2. AERIUS [Concomitant]
     Active Substance: DESLORATADINE
  3. CEFUROXIME. [Concomitant]
     Active Substance: CEFUROXIME
     Indication: RESPIRATORY TRACT INFECTION
     Dosage: UNK
     Dates: start: 20160119, end: 20160122
  4. ENTYVIO [Suspect]
     Active Substance: VEDOLIZUMAB
     Indication: CROHN^S DISEASE
     Dosage: 300 MG, UNK
     Route: 042
     Dates: start: 20151216, end: 20160127
  5. ENTOCORT [Concomitant]
     Active Substance: BUDESONIDE
     Dosage: UNK, BID
     Route: 048
  6. VOGALENE [Concomitant]
     Active Substance: METOPIMAZINE
     Dosage: UNK
     Dates: start: 20160119

REACTIONS (5)
  - Pyrexia [Unknown]
  - Respiratory tract infection [Unknown]
  - Bronchitis [Unknown]
  - Cough [Unknown]
  - Nasopharyngitis [Unknown]

NARRATIVE: CASE EVENT DATE: 20160119
